FAERS Safety Report 12718736 (Version 1)
Quarter: 2016Q3

REPORT INFORMATION
  Report Type: Spontaneous
  Country: US (occurrence: US)
  Receive Date: 20160906
  Receipt Date: 20160906
  Transmission Date: 20161109
  Serious: Yes (Other)
  Sender: FDA-Public Use
  Company Number: US-GLAXOSMITHKLINE-US2016127336

PATIENT
  Sex: Female

DRUGS (2)
  1. BACTROBAN [Suspect]
     Active Substance: MUPIROCIN\MUPIROCIN CALCIUM
     Indication: PROPHYLAXIS
     Dosage: UNK, PRN
     Route: 065
     Dates: start: 2002
  2. BACTROBAN [Suspect]
     Active Substance: MUPIROCIN\MUPIROCIN CALCIUM
     Indication: SKIN INJURY

REACTIONS (4)
  - Skin neoplasm excision [Recovered/Resolved]
  - Skin cancer [Unknown]
  - Biopsy [Unknown]
  - Local swelling [Recovered/Resolved]

NARRATIVE: CASE EVENT DATE: 2011
